FAERS Safety Report 5152117-4 (Version None)
Quarter: 2006Q4

REPORT INFORMATION
  Report Type: 
  Country: None (occurrence: None)
  Receive Date: 20061116
  Receipt Date: 20061017
  Transmission Date: 20070319
  Serious: Yes (Hospitalization, Other)
  Sender: FDA-Public Use
  Company Number: PHHO2006AR17284

PATIENT
  Age: 64 Year
  Sex: Male
  Weight: 71 kg

DRUGS (7)
  1. NEORAL [Suspect]
     Indication: LIVER TRANSPLANT
     Dosage: 150 MG DAILY
     Route: 048
     Dates: start: 20060815, end: 20061013
  2. NEORAL [Suspect]
     Route: 048
     Dates: start: 20061023
  3. MEPREDNISONE [Suspect]
     Indication: LIVER TRANSPLANT
     Dosage: 8 MG DAILY
     Route: 048
     Dates: start: 20060624
  4. MEPREDNISONE [Suspect]
     Dosage: 16MG/DAILY
     Dates: start: 20060922
  5. MEPREDNISONE [Suspect]
     Dosage: 1 GRAM DAILY
     Dates: start: 20060926, end: 20060928
  6. AZATHIOPRINE [Suspect]
     Indication: LIVER TRANSPLANT
     Dosage: 50 MG DAILY
     Route: 048
     Dates: start: 20060315, end: 20061013
  7. AZATHIOPRINE [Suspect]
     Route: 048
     Dates: start: 20061023

REACTIONS (15)
  - ASTHENIA [None]
  - EAR PAIN [None]
  - GRANULOMATOUS LIVER DISEASE [None]
  - HEPATITIS [None]
  - HEPATITIS ACUTE [None]
  - HEPATITIS CHOLESTATIC [None]
  - HERPES ZOSTER INFECTION NEUROLOGICAL [None]
  - INFLUENZA LIKE ILLNESS [None]
  - JAUNDICE [None]
  - LIVER FUNCTION TEST ABNORMAL [None]
  - LIVER TRANSPLANT REJECTION [None]
  - MONOPARESIS [None]
  - OTITIS MEDIA [None]
  - PARTIAL SEIZURES [None]
  - VIRAL INFECTION [None]
